FAERS Safety Report 4424710-5 (Version None)
Quarter: 2004Q3

REPORT INFORMATION
  Report Type: 
  Country: None (occurrence: None)
  Receive Date: 20040809
  Receipt Date: 20040723
  Transmission Date: 20050211
  Serious: Yes (Hospitalization)
  Sender: FDA-Public Use
  Company Number: 2004AP03663

PATIENT
  Age: 57 Year
  Sex: Male
  Weight: 87.6 kg

DRUGS (4)
  1. OMEPRAL [Suspect]
     Dosage: 40 MG DAILY IV
     Route: 042
     Dates: start: 20040622, end: 20040624
  2. SEVOFRANE [Suspect]
     Dates: start: 20040622
  3. MUSCULAX [Suspect]
     Dates: start: 20040622
  4. ZEFIX [Concomitant]

REACTIONS (1)
  - RHABDOMYOLYSIS [None]
